FAERS Safety Report 6770965-1 (Version None)
Quarter: 2010Q2

REPORT INFORMATION
  Report Type: 
  Country: None (occurrence: None)
  Receive Date: 20100616
  Receipt Date: 20100607
  Transmission Date: 20101027
  Serious: Yes (Hospitalization)
  Sender: FDA-Public Use
  Company Number: US-BIOGENIDEC-2010BI019155

PATIENT
  Age: 55 Year
  Sex: Male
  Weight: 115 kg

DRUGS (2)
  1. TYSABRI [Suspect]
     Indication: MULTIPLE SCLEROSIS
     Route: 042
     Dates: start: 20090901
  2. PROZAC [Concomitant]
     Indication: DEPRESSION

REACTIONS (1)
  - PNEUMONIA [None]
